FAERS Safety Report 9402763 (Version 1)
Quarter: 2013Q3

REPORT INFORMATION
  Report Type: Report from Study
  Country: CA (occurrence: CA)
  Receive Date: 20130716
  Receipt Date: 20130716
  Transmission Date: 20140515
  Serious: Yes (Other)
  Sender: FDA-Public Use
  Company Number: CA-JNJFOC-20130706150

PATIENT
  Sex: Female
  Weight: 89.5 kg

DRUGS (9)
  1. REMICADE [Suspect]
     Indication: CROHN^S DISEASE
     Dosage: FOR 52 WEEKS
     Route: 042
  2. ASA [Concomitant]
     Route: 048
  3. METOPROLOL [Concomitant]
     Route: 048
  4. BUPROPION HCL [Concomitant]
     Dosage: SUSTAINED RELEASE
     Route: 048
  5. RAMIPRIL [Concomitant]
     Route: 048
  6. PANTOPRAZOLE [Concomitant]
     Route: 048
  7. ALENDRONATE SODIUM [Concomitant]
     Route: 048
  8. B12 [Concomitant]
     Route: 048
  9. ATORVASTATIN [Concomitant]
     Route: 048

REACTIONS (1)
  - Atrial fibrillation [Not Recovered/Not Resolved]
